FAERS Safety Report 8280595 (Version 2)
Quarter: 2014Q1

REPORT INFORMATION
  Report Type: Spontaneous
  Country: US (occurrence: US)
  Receive Date: 20111208
  Receipt Date: 20140224
  Transmission Date: 20141002
  Serious: Yes (Hospitalization, Other)
  Sender: FDA-Public Use
  Company Number: US-ELI_LILLY_AND_COMPANY-US201112000554

PATIENT
  Sex: Male

DRUGS (10)
  1. HUMALOG LISPRO [Suspect]
     Indication: TYPE 2 DIABETES MELLITUS
     Dosage: 300 U, QD
     Dates: start: 2001
  2. HUMALOG LISPRO [Suspect]
     Dosage: 300 U, QD
     Dates: start: 2001
  3. HUMALOG LISPRO [Suspect]
     Dosage: 10 U, QD
  4. HUMALOG LISPRO [Suspect]
     Dosage: 60 U, QD
     Dates: start: 2012
  5. HUMALOG LISPRO [Suspect]
     Indication: TYPE 2 DIABETES MELLITUS
     Dosage: 10 U, QD
     Route: 065
  6. HUMALOG LISPRO [Suspect]
     Dosage: 60 U, QD
     Route: 065
     Dates: start: 2012
  7. LEVEMIR [Concomitant]
     Dosage: 10 U, QD
  8. ALLOPURINOL [Concomitant]
  9. LASIX                              /00032601/ [Concomitant]
  10. PRINIVIL [Concomitant]

REACTIONS (5)
  - Weight decreased [Unknown]
  - Staphylococcal infection [Unknown]
  - Nephrolithiasis [Unknown]
  - Accident [Unknown]
  - Expired drug administered [Not Recovered/Not Resolved]
